FAERS Safety Report 5129296-8 (Version None)
Quarter: 2006Q4

REPORT INFORMATION
  Report Type: 
  Country: None (occurrence: None)
  Receive Date: 20061011
  Receipt Date: 20060502
  Transmission Date: 20070319
  Serious: Yes (Death, Hospitalization)
  Sender: FDA-Public Use
  Company Number: 223025

PATIENT
  Age: 54 Year
  Sex: Female
  Weight: 57 kg

DRUGS (7)
  1. AVASTIN [Suspect]
     Indication: COLORECTAL CANCER
     Dosage: 280 MG, INTRAVENOUS
     Route: 042
     Dates: start: 20060222, end: 20060222
  2. IRINOTECAN HCL [Suspect]
     Indication: COLORECTAL CANCER METASTATIC
     Dosage: 300 MG, INTRAVENOUS
     Route: 042
     Dates: start: 20060222, end: 20060222
  3. FLUOROURACIL [Suspect]
     Indication: COLORECTAL CANCER METASTATIC
     Dosage: INTRAVENOUS
     Route: 042
     Dates: start: 20060222, end: 20060224
  4. LEUCOVORIN CALCIUM [Concomitant]
  5. MORPHINE SULFATE [Concomitant]
  6. OMEPRAZOLE [Concomitant]
  7. ZOLPIDEM TARTRATE [Concomitant]

REACTIONS (8)
  - DEHYDRATION [None]
  - ENTERITIS INFECTIOUS [None]
  - FEBRILE BONE MARROW APLASIA [None]
  - GENERAL PHYSICAL HEALTH DETERIORATION [None]
  - INTESTINAL OBSTRUCTION [None]
  - INTESTINAL ULCER [None]
  - NECROTISING COLITIS [None]
  - SEPTIC SHOCK [None]
